FAERS Safety Report 10179252 (Version 2)
Quarter: 2014Q2

REPORT INFORMATION
  Report Type: Spontaneous
  Country: US (occurrence: US)
  Receive Date: 20140519
  Receipt Date: 20140519
  Transmission Date: 20141212
  Serious: No
  Sender: FDA-Public Use
  Company Number: US-ENDO PHARMACEUTICALS INC.-AMLO20130015

PATIENT
  Age: 62 Year
  Sex: Female
  Weight: 65.83 kg

DRUGS (4)
  1. AMLODIPINE BESYLATE TABLETS 10MG [Suspect]
     Indication: BLOOD PRESSURE
     Route: 048
     Dates: start: 20130602, end: 20130602
  2. METOPROLOL [Concomitant]
     Indication: BLOOD PRESSURE
     Route: 065
  3. AMITRIPTYLINE [Concomitant]
     Indication: PRODUCT USED FOR UNKNOWN INDICATION
     Route: 065
  4. ALPRAZOLAM [Concomitant]
     Indication: PRODUCT USED FOR UNKNOWN INDICATION
     Route: 065

REACTIONS (1)
  - Oesophageal pain [Recovered/Resolved]
